FAERS Safety Report 18284328 (Version 1)
Quarter: 2020Q3

REPORT INFORMATION
  Report Type: Report from Study
  Country: US (occurrence: US)
  Receive Date: 20200918
  Receipt Date: 20200918
  Transmission Date: 20201103
  Serious: Yes (Other)
  Sender: FDA-Public Use
  Company Number: US-JNJFOC-A-NJ2018-170982

PATIENT
  Age: 84 Year
  Sex: Female
  Weight: 48.07 kg

DRUGS (2)
  1. OPSUMIT [Suspect]
     Active Substance: MACITENTAN
     Indication: PULMONARY ARTERIAL HYPERTENSION
     Dosage: 10 MG, QD
     Route: 048
     Dates: start: 201811
  2. OPSUMIT [Suspect]
     Active Substance: MACITENTAN
     Route: 048

REACTIONS (13)
  - Pneumonia [Unknown]
  - Asthenia [Recovering/Resolving]
  - Fall [Unknown]
  - Gait disturbance [Unknown]
  - Aphonia [Unknown]
  - Rhinorrhoea [Unknown]
  - Bronchitis [Unknown]
  - Oropharyngeal pain [Unknown]
  - Chest injury [Unknown]
  - Weight decreased [Unknown]
  - Nasopharyngitis [Unknown]
  - Cough [Unknown]
  - Back pain [Unknown]

NARRATIVE: CASE EVENT DATE: 202007
